FAERS Safety Report 13264710 (Version 2)
Quarter: 2017Q1

REPORT INFORMATION
  Report Type: Spontaneous
  Country: US (occurrence: US)
  Receive Date: 20170223
  Receipt Date: 20170224
  Transmission Date: 20170428
  Serious: Yes (Other)
  Sender: FDA-Public Use
  Company Number: US-BAYER-2017-033695

PATIENT
  Age: 54 Year
  Sex: Male

DRUGS (3)
  1. ENOXAPARIN [Interacting]
     Active Substance: ENOXAPARIN
     Indication: TENSION HEADACHE
  2. IBUPROFEN. [Interacting]
     Active Substance: IBUPROFEN
     Indication: TENSION HEADACHE
  3. ACETYLSALICYLIC ACID({=100 MG) [Suspect]
     Active Substance: ASPIRIN
     Indication: TENSION HEADACHE

REACTIONS (4)
  - Oesophageal ulcer [None]
  - Labelled drug-drug interaction medication error [None]
  - Drug administration error [None]
  - Haematemesis [Recovering/Resolving]
